FAERS Safety Report 9804987 (Version 1)
Quarter: 2014Q1

REPORT INFORMATION
  Report Type: Spontaneous
  Country: US (occurrence: US)
  Receive Date: 20140109
  Receipt Date: 20140109
  Transmission Date: 20141002
  Serious: Yes (Hospitalization)
  Sender: FDA-Public Use
  Company Number: US-009507513-1401USA002274

PATIENT
  Sex: Female

DRUGS (11)
  1. PRINIVIL [Suspect]
     Route: 048
  2. FERROUS SULFATE [Concomitant]
  3. NORETHINDRONE [Concomitant]
  4. ETHINYL ESTRADIOL [Concomitant]
  5. HYDROCODONE [Concomitant]
  6. ACETAMINOPHEN [Concomitant]
  7. LEVOTHYROXINE SODIUM [Concomitant]
  8. PAROXETINE [Concomitant]
  9. CYCLOBENZAPRINE HYDROCHLORIDE [Concomitant]
  10. PROMETHAZINE [Concomitant]
  11. RABEPRAZOLE SODIUM [Concomitant]

REACTIONS (1)
  - Small bowel angioedema [Recovered/Resolved]
